FAERS Safety Report 5178721-5 (Version None)
Quarter: 2006Q4

REPORT INFORMATION
  Report Type: 
  Country: None (occurrence: None)
  Receive Date: 20061218
  Receipt Date: 20060811
  Transmission Date: 20070319
  Serious: No
  Sender: FDA-Public Use
  Company Number: US-AMGEN-KDL189916

PATIENT
  Sex: Female

DRUGS (1)
  1. ENBREL [Suspect]
     Route: 058
     Dates: start: 20050801, end: 20060811

REACTIONS (2)
  - NODULE ON EXTREMITY [None]
  - SENSATION OF FOREIGN BODY [None]
